FAERS Safety Report 17557481 (Version 2)
Quarter: 2020Q1

REPORT INFORMATION
  Report Type: Report from Study
  Country: DE (occurrence: DE)
  Receive Date: 20200318
  Receipt Date: 20200319
  Transmission Date: 20200409
  Serious: Yes (Hospitalization)
  Sender: FDA-Public Use
  Company Number: DE-CELGENEUS-DEU-20200305753

PATIENT
  Age: 68 Year
  Sex: Male
  Weight: 96 kg

DRUGS (8)
  1. DEXAMETHASONE. [Suspect]
     Active Substance: DEXAMETHASONE
     Indication: PLASMA CELL MYELOMA
     Route: 048
     Dates: start: 20191104, end: 20200313
  2. LENALIDOMIDE [Suspect]
     Active Substance: LENALIDOMIDE
     Indication: PLASMA CELL MYELOMA
     Route: 048
     Dates: start: 20191104
  3. ACICLOVIR [Concomitant]
     Active Substance: ACYCLOVIR
     Indication: PROPHYLAXIS
     Dosage: 800 MILLIGRAM
     Route: 065
     Dates: start: 20191104, end: 20200316
  4. BORTEZOMIB. [Concomitant]
     Active Substance: BORTEZOMIB
     Indication: PLASMA CELL MYELOMA
     Route: 058
     Dates: start: 20191104, end: 20200312
  5. PANTOZOL [Concomitant]
     Active Substance: PANTOPRAZOLE SODIUM
     Indication: PROPHYLAXIS
     Dosage: 40 MILLIGRAM
     Route: 065
     Dates: start: 20191104, end: 20200315
  6. NEURO-RATIOPHARM [Concomitant]
     Indication: NEURALGIA
     Dosage: 100 MILLIGRAM
     Route: 065
     Dates: start: 20200114, end: 20200316
  7. MIRTAZOPIN [Concomitant]
     Indication: DEPRESSION
     Dosage: 15 MILLIGRAM
     Route: 065
     Dates: start: 20200312, end: 20200315
  8. ASA [Concomitant]
     Active Substance: ASPIRIN
     Indication: PROPHYLAXIS
     Dosage: 800 MILLIGRAM
     Route: 065
     Dates: start: 20191104, end: 20200316

REACTIONS (2)
  - Asthenia [Not Recovered/Not Resolved]
  - Orthostatic intolerance [Not Recovered/Not Resolved]

NARRATIVE: CASE EVENT DATE: 20200316
